FAERS Safety Report 7384634-0 (Version None)
Quarter: 2011Q1

REPORT INFORMATION
  Report Type: 
  Country: None (occurrence: None)
  Receive Date: 20110330
  Receipt Date: 20101116
  Transmission Date: 20110831
  Serious: No
  Sender: FDA-Public Use
  Company Number: US-BAYER-2010-005434

PATIENT
  Sex: Female

DRUGS (2)
  1. ALKA-SELTZER LEMON LIME [Suspect]
     Indication: ABDOMINAL DISCOMFORT
     Route: 048
  2. ALKA-SELTZER ORIGINAL [Suspect]
     Indication: ABDOMINAL DISCOMFORT
     Route: 048

REACTIONS (9)
  - HEADACHE [None]
  - INSOMNIA [None]
  - INITIAL INSOMNIA [None]
  - POOR QUALITY SLEEP [None]
  - NERVOUSNESS [None]
  - NO ADVERSE EVENT [None]
  - DIZZINESS [None]
  - MIDDLE INSOMNIA [None]
  - SOMNOLENCE [None]
